FAERS Safety Report 14165993 (Version 1)
Quarter: 2017Q4

REPORT INFORMATION
  Report Type: Spontaneous
  Country: US (occurrence: None)
  Receive Date: 20171106
  Receipt Date: 20171106
  Transmission Date: 20180321
  Serious: No
  Sender: FDA-Public Use
  Company Number: None

PATIENT
  Sex: Female

DRUGS (1)
  1. FORTEO [Suspect]
     Active Substance: TERIPARATIDE
     Indication: PRODUCT USED FOR UNKNOWN INDICATION
     Dosage: FREQUENCY - INJECT 20 MCG ONCE DAILY
     Route: 058
     Dates: start: 20161018

REACTIONS (5)
  - Headache [None]
  - Asthenia [None]
  - Fatigue [None]
  - Cardiac disorder [None]
  - Tremor [None]
